FAERS Safety Report 22658537 (Version 1)
Quarter: 2023Q2

REPORT INFORMATION
  Report Type: Spontaneous
  Country: US (occurrence: None)
  Receive Date: 20230629
  Receipt Date: 20230629
  Transmission Date: 20230721
  Serious: Yes (Other)
  Sender: FDA-Public Use
  Company Number: None

PATIENT
  Age: 58 Year
  Sex: Female
  Weight: 47.25 kg

DRUGS (9)
  1. AIMOVIG [Suspect]
     Active Substance: ERENUMAB-AOOE
     Indication: Migraine prophylaxis
     Dosage: OTHER QUANTITY : 1 INJECTION(S);?OTHER FREQUENCY : MONTLY;?
     Route: 030
  2. AIMOVIG [Suspect]
     Active Substance: ERENUMAB-AOOE
     Indication: Migraine
  3. Nexium [Concomitant]
  4. PEPCID [Concomitant]
     Active Substance: FAMOTIDINE
  5. LIPITOR [Concomitant]
  6. Synthrax [Concomitant]
  7. BOTOX [Concomitant]
     Active Substance: ONABOTULINUMTOXINA
  8. Multivitamins [Concomitant]
  9. MAGNESIUM OXIDE [Concomitant]

REACTIONS (3)
  - Constipation [None]
  - Abdominal distension [None]
  - Therapy cessation [None]

NARRATIVE: CASE EVENT DATE: 20230628
